FAERS Safety Report 6223603-0 (Version None)
Quarter: 2009Q2

REPORT INFORMATION
  Report Type: 
  Country: None (occurrence: None)
  Receive Date: 20090610
  Receipt Date: 20090604
  Transmission Date: 20091009
  Serious: Yes (Death)
  Sender: FDA-Public Use
  Company Number: 2009SP011771

PATIENT
  Age: 65 Year
  Sex: Female

DRUGS (6)
  1. TEMOZOLOMIDE [Suspect]
     Indication: GLIOMA
     Dosage: 140 MG; QD; PO
     Route: 048
     Dates: start: 20090320, end: 20090422
  2. BETAXA [Concomitant]
  3. CALTRATE [Concomitant]
  4. LOSEPRAZOL [Concomitant]
  5. ZOLOFT [Concomitant]
  6. LEXAURIN [Concomitant]

REACTIONS (2)
  - PANCYTOPENIA [None]
  - PNEUMONIA FUNGAL [None]
